FAERS Safety Report 8210544-2 (Version None)
Quarter: 2012Q1

REPORT INFORMATION
  Report Type: 
  Country: None (occurrence: None)
  Receive Date: 20120314
  Receipt Date: 20110811
  Transmission Date: 20120608
  Serious: No
  Sender: FDA-Public Use
  Company Number: US-ASTRAZENECA-2011SE48801

PATIENT
  Sex: Female

DRUGS (10)
  1. PRAVASTATIN [Concomitant]
  2. NORVASC [Concomitant]
  3. TOPROL-XL [Suspect]
     Route: 048
  4. ARMODAFINIL [Concomitant]
  5. DICYCLOMINE [Concomitant]
  6. ASPIRIN [Concomitant]
  7. LISINOPRIL [Concomitant]
  8. MELOXICAM [Concomitant]
  9. NEXIUM [Concomitant]
  10. GEMFIBROZIL [Concomitant]

REACTIONS (5)
  - ABDOMINAL DISCOMFORT [None]
  - CHEST PAIN [None]
  - VOMITING [None]
  - NAUSEA [None]
  - HYPERSENSITIVITY [None]
